FAERS Safety Report 5688216-8 (Version None)
Quarter: 2008Q1

REPORT INFORMATION
  Report Type: 
  Country: None (occurrence: None)
  Receive Date: 20080327
  Receipt Date: 20080310
  Transmission Date: 20080703
  Serious: Yes (Other)
  Sender: FDA-Public Use
  Company Number: ENT 2008-0035

PATIENT
  Age: 70 Year
  Sex: Female

DRUGS (6)
  1. COMTAN [Suspect]
     Indication: DRUG EFFECT DECREASED
     Dates: start: 20030101
  2. SINEMET [Concomitant]
  3. ALPRAZOLAM [Concomitant]
  4. LIPITOR [Concomitant]
  5. ASPIRIN [Concomitant]
  6. PERINDOPRIL ERBUMINE [Concomitant]

REACTIONS (2)
  - COLITIS [None]
  - FEELING ABNORMAL [None]
